FAERS Safety Report 10099021 (Version 4)
Quarter: 2014Q2

REPORT INFORMATION
  Report Type: Spontaneous
  Country: US (occurrence: US)
  Receive Date: 20140423
  Receipt Date: 20140626
  Transmission Date: 20141212
  Serious: Yes (Other)
  Sender: FDA-Public Use
  Company Number: US-PFIZER INC-2014109701

PATIENT
  Age: 39 Year
  Sex: Male
  Weight: 102 kg

DRUGS (3)
  1. DEPO-TESTOSTERONE [Suspect]
     Indication: BLOOD TESTOSTERONE DECREASED
     Dosage: 2 ML, ONCE EVERY TWO WEEKS
     Route: 030
     Dates: start: 20120821
  2. DEPO-TESTOSTERONE [Suspect]
     Dosage: 2 ML, ONCE EVERY TWO WEEKS
     Route: 030
  3. HYDROCHLOROTHIAZIDE [Concomitant]
     Indication: DIURETIC THERAPY
     Dosage: 25 MG, AS NEEDED

REACTIONS (9)
  - Bronchitis [Unknown]
  - Malaise [Unknown]
  - Sluggishness [Not Recovered/Not Resolved]
  - Decreased activity [Not Recovered/Not Resolved]
  - Fatigue [Not Recovered/Not Resolved]
  - Irritability [Not Recovered/Not Resolved]
  - Disease progression [Not Recovered/Not Resolved]
  - Drug ineffective [Unknown]
  - Product quality issue [Unknown]
